FAERS Safety Report 23159749 (Version 1)
Quarter: 2023Q4

REPORT INFORMATION
  Report Type: Spontaneous
  Country: JP (occurrence: JP)
  Receive Date: 20231108
  Receipt Date: 20231108
  Transmission Date: 20240109
  Serious: No
  Sender: FDA-Public Use
  Company Number: JP-SCALL-2023-JP-046395-1

PATIENT
  Age: 88 Year
  Sex: Male

DRUGS (6)
  1. DUTASTERIDE [Suspect]
     Active Substance: DUTASTERIDE
     Indication: Benign prostatic hyperplasia
     Dosage: 0.5 MG, 1D
     Route: 065
  2. Flivas (Naftopidil) [Concomitant]
     Indication: Benign prostatic hyperplasia
     Dosage: 75 MG, OD
     Route: 048
  3. Mucosta (Rebamipide) [Concomitant]
  4. SIMVASTATIN [Concomitant]
     Active Substance: SIMVASTATIN
  5. TAFLUPROST [Concomitant]
     Active Substance: TAFLUPROST
  6. Hyalein (Hyaluronate Sodium) [Concomitant]

REACTIONS (1)
  - Hyperhidrosis [Unknown]
